FAERS Safety Report 5627373-6 (Version None)
Quarter: 2008Q1

REPORT INFORMATION
  Report Type: 
  Country: None (occurrence: None)
  Receive Date: 20080215
  Receipt Date: 20080211
  Transmission Date: 20080703
  Serious: Yes (Life-Threatening)
  Sender: FDA-Public Use
  Company Number: FR-JNJFOC-20080102429

PATIENT
  Sex: Male

DRUGS (7)
  1. REOPRO [Suspect]
     Route: 042
  2. REOPRO [Suspect]
     Indication: MYOCARDIAL INFARCTION
     Dosage: BOLUS FOLLOWED BY INTRAVENOUS INFUSION
     Route: 042
  3. HEPARIN [Concomitant]
  4. PLAVIX [Concomitant]
  5. PLAVIX [Concomitant]
  6. KARDEGIC [Concomitant]
  7. LOVENOX [Concomitant]

REACTIONS (5)
  - CARDIOGENIC SHOCK [None]
  - HAEMATOMA [None]
  - HAEMOGLOBIN DECREASED [None]
  - THROMBOCYTOPENIA [None]
  - VASCULAR PSEUDOANEURYSM [None]
